FAERS Safety Report 25688220 (Version 1)
Quarter: 2025Q3

REPORT INFORMATION
  Report Type: Spontaneous
  Country: KE (occurrence: KE)
  Receive Date: 20250818
  Receipt Date: 20250818
  Transmission Date: 20251021
  Serious: Yes (Other)
  Sender: BRISTOL-MYERS SQUIBB COMPANY
  Company Number: KE-BRISTOL-MYERS SQUIBB COMPANY-2025-113116

PATIENT
  Age: 57 Year
  Sex: Male

DRUGS (2)
  1. OPDIVO [Suspect]
     Active Substance: NIVOLUMAB
     Indication: Transitional cell carcinoma
     Dates: start: 20250711
  2. OPDIVO [Suspect]
     Active Substance: NIVOLUMAB
     Dates: start: 20250725

REACTIONS (3)
  - Ureteric obstruction [Unknown]
  - Metastases to kidney [Unknown]
  - Off label use [Unknown]
